FAERS Safety Report 23921578 (Version 1)
Quarter: 2024Q2

REPORT INFORMATION
  Report Type: Spontaneous
  Country: US (occurrence: US)
  Receive Date: 20240530
  Receipt Date: 20240530
  Transmission Date: 20240716
  Serious: No
  Sender: FDA-Public Use
  Company Number: US-PHARMING-PHAUS2024000400

PATIENT

DRUGS (4)
  1. RUCONEST [Suspect]
     Active Substance: CONESTAT ALFA
     Indication: Hereditary angioedema
     Dosage: 2850 IU, PRN
     Route: 042
     Dates: start: 20231108
  2. EPINEPHRINE [Concomitant]
     Active Substance: EPINEPHRINE
     Indication: Product used for unknown indication
  3. NORETHINDRONE                      /00044901/ [Concomitant]
     Indication: Product used for unknown indication
  4. MULTIVITAMINS                      /00116001/ [Concomitant]
     Indication: Product used for unknown indication

REACTIONS (1)
  - Underdose [Unknown]
